FAERS Safety Report 20637168 (Version 8)
Quarter: 2023Q2

REPORT INFORMATION
  Report Type: Spontaneous
  Country: US (occurrence: US)
  Receive Date: 20220325
  Receipt Date: 20230414
  Transmission Date: 20230722
  Serious: Yes (Other)
  Sender: FDA-Public Use
  Company Number: US-PFIZER INC-202200458603

PATIENT
  Age: 65 Year
  Sex: Male

DRUGS (6)
  1. XELJANZ [Suspect]
     Active Substance: TOFACITINIB CITRATE
     Indication: Colitis ulcerative
     Dosage: 10 MG, 2X/DAY
     Route: 048
     Dates: start: 202102
  2. XELJANZ [Suspect]
     Active Substance: TOFACITINIB CITRATE
     Dosage: 5 MG, 2X/DAY
     Route: 048
     Dates: start: 202210
  3. ATORVASTATIN [Concomitant]
     Active Substance: ATORVASTATIN
     Dosage: UNK
  4. ASPIRIN [Concomitant]
     Active Substance: ASPIRIN
     Dosage: 81 MG
  5. FAMOTIDINE [Concomitant]
     Active Substance: FAMOTIDINE
     Dosage: UNK
  6. MESALAMINE [Concomitant]
     Active Substance: MESALAMINE
     Dosage: UNK

REACTIONS (14)
  - Diverticulitis [Unknown]
  - Blood cholesterol increased [Recovered/Resolved]
  - Dyspepsia [Recovered/Resolved]
  - Asthma [Recovered/Resolved]
  - Constipation [Recovered/Resolved]
  - Sinusitis [Unknown]
  - Rash [Unknown]
  - Diarrhoea [Unknown]
  - Abdominal pain lower [Unknown]
  - Psoriasis [Unknown]
  - Product use issue [Unknown]
  - Product dose omission issue [Unknown]
  - Extra dose administered [Unknown]
  - Memory impairment [Unknown]

NARRATIVE: CASE EVENT DATE: 20230104
